FAERS Safety Report 6446001-3 (Version None)
Quarter: 2009Q4

REPORT INFORMATION
  Report Type: 
  Country: None (occurrence: None)
  Receive Date: 20091119
  Receipt Date: 20090625
  Transmission Date: 20100525
  Serious: No
  Sender: FDA-Public Use
  Company Number: A0795324A

PATIENT
  Age: 62 Year
  Sex: Female

DRUGS (1)
  1. BUPROPION HCL [Suspect]
     Dosage: 100MG IN THE MORNING
     Route: 048
     Dates: start: 20090401, end: 20090524

REACTIONS (1)
  - TINNITUS [None]
